FAERS Safety Report 5058234-1 (Version None)
Quarter: 2006Q2

REPORT INFORMATION
  Report Type: 
  Country: None (occurrence: None)
  Receive Date: 20060622
  Receipt Date: 20051201
  Transmission Date: 20061013
  Serious: Yes (Hospitalization)
  Sender: FDA-Public Use
  Company Number: US-JNJFOC-20051200964

PATIENT
  Age: 82 Year
  Sex: Female
  Weight: 83.9154 kg

DRUGS (4)
  1. FENTANYL [Suspect]
     Indication: PAIN
     Dosage: 25 UG/HR, 1 IN 72 HOUR, TRANSDERMAL
     Route: 062
  2. FLEXERIL [Suspect]
     Indication: MUSCLE RELAXANT THERAPY
     Dosage: 10 MG, 2 IN 24 HOUR, ORAL
     Route: 048
     Dates: start: 20050915, end: 20050920
  3. VALIUM [Suspect]
     Indication: MUSCLE RELAXANT THERAPY
     Dosage: 10 MG, 2 IN 24  HOUR, ORAL
     Route: 048
     Dates: start: 20050915, end: 20050920
  4. INSULIN [Concomitant]

REACTIONS (1)
  - AMNESIA [None]
